FAERS Safety Report 5475384-6 (Version None)
Quarter: 2007Q4

REPORT INFORMATION
  Report Type: 
  Country: None (occurrence: None)
  Receive Date: 20071003
  Receipt Date: 20070925
  Transmission Date: 20080405
  Serious: Yes (Other)
  Sender: FDA-Public Use
  Company Number: PHEH2007US12789

PATIENT
  Age: 69 Year
  Sex: Male

DRUGS (5)
  1. LOPRESSOR [Suspect]
     Dates: start: 20070830
  2. SYMLIN [Suspect]
     Indication: DIABETES MELLITUS
     Dosage: 60 MCG SQ BID
     Dates: start: 20070605, end: 20070101
  3. SYMLIN [Suspect]
     Dosage: 120 MCG SQ BID
     Dates: start: 20070101, end: 20070830
  4. HUMALOG [Concomitant]
  5. PLAVIX [Concomitant]
     Dates: start: 20070830

REACTIONS (3)
  - MYOCARDIAL INFARCTION [None]
  - RASH GENERALISED [None]
  - RASH PRURITIC [None]
